FAERS Safety Report 7357464-3 (Version None)
Quarter: 2011Q1

REPORT INFORMATION
  Report Type: 
  Country: None (occurrence: None)
  Receive Date: 20110309
  Receipt Date: 20100916
  Transmission Date: 20110831
  Serious: Yes (Life-Threatening, Other)
  Sender: FDA-Public Use
  Company Number: 2010SE39128

PATIENT
  Age: 67 Year
  Sex: Female

DRUGS (15)
  1. TAKEPRON (LANSOPRAZOLE) [Concomitant]
  2. MUCOSTA (REBAMIPIDE) [Concomitant]
  3. DEFERASIROX [Concomitant]
  4. FOSCAVIR [Suspect]
     Indication: CYTOMEGALOVIRUS CHORIORETINITIS
     Dosage: 4008 MG BID/2004 MG DAILY / 3648 MG QOD, INTRAVENOUS DRIP
     Route: 041
     Dates: start: 20100810, end: 20100824
  5. FOSCAVIR [Suspect]
     Indication: CYTOMEGALOVIRUS CHORIORETINITIS
     Dosage: 4008 MG BID/2004 MG DAILY / 3648 MG QOD, INTRAVENOUS DRIP
     Route: 041
     Dates: start: 20100825, end: 20100902
  6. FOSCAVIR [Suspect]
     Indication: CYTOMEGALOVIRUS CHORIORETINITIS
     Dosage: 4008 MG BID/2004 MG DAILY / 3648 MG QOD, INTRAVENOUS DRIP
     Route: 041
     Dates: start: 20100904, end: 20100907
  7. BACTRIM [Concomitant]
  8. PREDNISOLONE [Concomitant]
  9. DIFLUCAN [Concomitant]
  10. NEUPOGEN [Concomitant]
  11. ADONA (CARBAZOCHROME SODIUM SULFONATE [Concomitant]
  12. SUCRALFATE [Concomitant]
  13. ONEALFA (ALFACALCIDOL) [Concomitant]
  14. GLAKAY (MENATYETRENONE) [Concomitant]
  15. SEIBULE (MIGLITOL) [Concomitant]

REACTIONS (5)
  - C-REACTIVE PROTEIN INCREASED [None]
  - DECREASED APPETITE [None]
  - ABDOMINAL PAIN UPPER [None]
  - HYPOKALAEMIA [None]
  - VOMITING [None]
